FAERS Safety Report 6784238 (Version 3)
Quarter: 2012Q4

REPORT INFORMATION
  Report Type: Report from Study
  Country: US (occurrence: US)
  Receive Date: 20081010
  Receipt Date: 20121005
  Transmission Date: 20130627
  Serious: Yes (Hospitalization, Other)
  Sender: FDA-Public Use
  Company Number: US-BRISTOL-MYERS SQUIBB COMPANY-14358865

PATIENT
  Age: 64 Year
  Sex: Male
  Weight: 96 kg

DRUGS (2)
  1. DASATINIB [Suspect]
     Indication: SARCOMA
     Dosage: Initiated on 11-Sep-2008.Last dose on 01Oct2008,interrupted on 02Oct2008
     Route: 048
     Dates: start: 20080911
  2. ATENOLOL TABS [Concomitant]
     Dosage: 25mg tabs take 1 x 30 days # 30 tabs
     Route: 048

REACTIONS (10)
  - Hypokalaemia [Recovered/Resolved]
  - Hyponatraemia [Recovered/Resolved]
  - Sepsis [Recovered/Resolved]
  - Renal failure [Recovered/Resolved]
  - Pyrexia [Recovered/Resolved]
  - Hypotension [Recovered/Resolved]
  - Respiratory distress [Recovered/Resolved]
  - Atrial fibrillation [Recovered/Resolved]
  - Retroperitoneal haemorrhage [Recovered/Resolved]
  - Confusional state [Recovered/Resolved]
